FAERS Safety Report 24303408 (Version 1)
Quarter: 2024Q3

REPORT INFORMATION
  Report Type: Spontaneous
  Country: CZ (occurrence: CZ)
  Receive Date: 20240910
  Receipt Date: 20240910
  Transmission Date: 20241016
  Serious: Yes (Death, Life-Threatening, Hospitalization, Other)
  Sender: MERCK
  Company Number: None

PATIENT
  Age: 55 Year
  Sex: Female
  Weight: 57 kg

DRUGS (26)
  1. KEYTRUDA [Suspect]
     Active Substance: PEMBROLIZUMAB
     Indication: Lung neoplasm malignant
     Dosage: 200MG EVERY 21 DAYS (MOVED TO AN INTERVAL OF 35 DAYS)
     Route: 042
     Dates: start: 20240212, end: 20240613
  2. PEMETREXED [Suspect]
     Active Substance: PEMETREXED
     Indication: Lung neoplasm malignant
     Route: 042
     Dates: start: 20240212, end: 20240805
  3. FUROSEMIDE [Concomitant]
     Active Substance: FUROSEMIDE
     Dosage: 1/2 - 0 - 0
  4. CISPLATIN [Concomitant]
     Active Substance: CISPLATIN
     Indication: Lung neoplasm malignant
     Route: 042
     Dates: start: 20240212, end: 20240212
  5. BILASTINE [Concomitant]
     Active Substance: BILASTINE
     Dosage: 1-0-0
  6. ACETAMINOPHEN [Concomitant]
     Active Substance: ACETAMINOPHEN
     Dosage: 1 - 1 - 1 - 1
     Route: 048
  7. HELICID MAX [Concomitant]
     Dosage: 1 - 0 - 1 BEFORE A MEAL
     Route: 048
     Dates: start: 20240624, end: 20240719
  8. SUMATRIPTAN [Concomitant]
     Active Substance: SUMATRIPTAN\SUMATRIPTAN SUCCINATE
     Indication: Migraine
  9. PREDNISONE [Concomitant]
     Active Substance: PREDNISONE
     Dosage: 1/2 - 0 - 0
     Dates: end: 20240719
  10. SERTRALINE HYDROCHLORIDE [Concomitant]
     Active Substance: SERTRALINE HYDROCHLORIDE
     Dosage: 1 - 0 - 0
  11. TELMISARTAN [Concomitant]
     Active Substance: TELMISARTAN
  12. CONTROLOC [Concomitant]
     Active Substance: PANTOPRAZOLE SODIUM
     Dosage: 1-0-0
     Dates: start: 20240730, end: 20240815
  13. FOLIC ACID [Concomitant]
     Active Substance: FOLIC ACID
     Indication: Premedication
     Dosage: 1-0-0
     Dates: start: 20240212
  14. TRAZODONE HYDROCHLORIDE [Concomitant]
     Active Substance: TRAZODONE HYDROCHLORIDE
     Dosage: 0 - 0 - 0 - 2/3 (FOR INSOMNIA)
  15. ASKETON [Concomitant]
     Dosage: 1 - 1 - 1
  16. VITAMIN B12 [Concomitant]
     Active Substance: CYANOCOBALAMIN
     Indication: Premedication
     Dosage: 1ST INJECTION WAS APPLIED BEFORE THE START OF TREATMENT, FURTHER APPLICATIONS EVERY THIRD CYCLE (AT
     Route: 030
     Dates: start: 20240212
  17. ESCITALOPRAM [Concomitant]
     Active Substance: ESCITALOPRAM OXALATE
     Dosage: 1 - 0 - 0
  18. GRANISETRON HYDROCHLORIDE [Concomitant]
     Active Substance: GRANISETRON HYDROCHLORIDE
     Indication: Nausea
  19. CHOLECALCIFEROL [Concomitant]
     Active Substance: CHOLECALCIFEROL
     Dosage: 8 - 0 - 0
  20. ALPRAZOLAM [Concomitant]
     Active Substance: ALPRAZOLAM
     Indication: Anxiety
     Dosage: 0 - 0 - 0 - 1 (ONLY FOR ANXIETY AND INSOMNIA!)
  21. ALPRAZOLAM [Concomitant]
     Active Substance: ALPRAZOLAM
     Indication: Insomnia
  22. DEXAMETHASONE [Concomitant]
     Active Substance: DEXAMETHASONE
     Indication: Premedication
     Dosage: 1-0-1, ALWAYS THE DAY BEFORE AND THE DAY AFTER CHEMOTHERAPY
     Dates: start: 202402
  23. BISOPROLOL [Concomitant]
     Active Substance: BISOPROLOL\BISOPROLOL FUMARATE
     Dosage: 1-0-0
  24. CALCIUM\CHOLECALCIFEROL [Concomitant]
     Active Substance: CALCIUM\CHOLECALCIFEROL
     Dosage: 0 - 0 - 1
  25. DENOSUMAB [Concomitant]
     Active Substance: DENOSUMAB
     Dates: start: 202406
  26. CARBOPLATIN [Concomitant]
     Active Substance: CARBOPLATIN
     Indication: Lung neoplasm malignant
     Route: 042
     Dates: start: 20240307, end: 20240418

REACTIONS (13)
  - Acute kidney injury [Fatal]
  - Acute kidney injury [Recovered/Resolved]
  - Dehydration [Recovered/Resolved]
  - Enteritis [Unknown]
  - Febrile neutropenia [Fatal]
  - Pancytopenia [Unknown]
  - Metabolic acidosis [Unknown]
  - Hypocalcaemia [Unknown]
  - Hyperparathyroidism secondary [Unknown]
  - Diarrhoea [Fatal]
  - Liver disorder [Unknown]
  - Colitis [Fatal]
  - Pancytopenia [Recovered/Resolved]

NARRATIVE: CASE EVENT DATE: 20240601
